FAERS Safety Report 24333409 (Version 1)
Quarter: 2024Q3

REPORT INFORMATION
  Report Type: Spontaneous
  Country: GB (occurrence: GB)
  Receive Date: 20240918
  Receipt Date: 20240918
  Transmission Date: 20241017
  Serious: Yes (Other)
  Sender: PFIZER
  Company Number: None

PATIENT
  Age: 47 Year
  Sex: Female
  Weight: 83 kg

DRUGS (17)
  1. PALBOCICLIB [Suspect]
     Active Substance: PALBOCICLIB
     Indication: Breast cancer metastatic
     Dosage: 125 MG, 1X/DAY (AT NIGHT)
  2. LETROZOLE [Concomitant]
     Active Substance: LETROZOLE
     Indication: Breast cancer metastatic
  3. LEUPROLIDE ACETATE [Concomitant]
     Active Substance: ISOPROPYL ALCOHOL\LEUPROLIDE ACETATE
     Indication: Breast cancer metastatic
  4. DIHYDROCODEINE [Concomitant]
     Active Substance: DIHYDROCODEINE
     Indication: Analgesic therapy
  5. DOCUSATE [Concomitant]
     Active Substance: DOCUSATE
     Indication: Constipation prophylaxis
  6. MORPHINE SULFATE [Concomitant]
     Active Substance: MORPHINE SULFATE
     Indication: Breakthrough pain
  7. NAPROXEN [Concomitant]
     Active Substance: NAPROXEN
     Indication: Antiinflammatory therapy
  8. NORTRIPTYLINE [Concomitant]
     Active Substance: NORTRIPTYLINE
     Indication: Mood swings
  9. OMEPRAZOLE [Concomitant]
     Active Substance: OMEPRAZOLE
     Indication: Ulcer
  10. ACETAMINOPHEN [Concomitant]
     Active Substance: ACETAMINOPHEN
     Indication: Analgesic therapy
  11. PREGABALIN [Concomitant]
     Active Substance: PREGABALIN
     Indication: Neuralgia
  12. SPIRONOLACTONE [Concomitant]
     Active Substance: SPIRONOLACTONE
     Indication: Polycystic ovarian syndrome
  13. ASPIRIN [Concomitant]
     Active Substance: ASPIRIN
     Indication: Anticoagulant therapy
  14. SENNA LEAF [Concomitant]
     Active Substance: SENNA LEAF
     Indication: Constipation
  15. CALCIUM CARBONATE\CHOLECALCIFEROL [Concomitant]
     Active Substance: CALCIUM CARBONATE\CHOLECALCIFEROL
     Indication: Prophylaxis
  16. DENOSUMAB [Concomitant]
     Active Substance: DENOSUMAB
     Indication: Supplementation therapy
  17. COAL TAR\COCONUT OIL\SALICYLIC ACID [Concomitant]
     Active Substance: COAL TAR\COCONUT OIL\SALICYLIC ACID
     Indication: Skin lesion

REACTIONS (4)
  - Psoriasis [Not Recovered/Not Resolved]
  - Infection [Unknown]
  - Skin weeping [Not Recovered/Not Resolved]
  - Pruritus [Not Recovered/Not Resolved]

NARRATIVE: CASE EVENT DATE: 20240101
